FAERS Safety Report 7820476-7 (Version None)
Quarter: 2011Q4

REPORT INFORMATION
  Report Type: 
  Country: None (occurrence: None)
  Receive Date: 20111018
  Receipt Date: 20111014
  Transmission Date: 20120403
  Serious: Yes (Death)
  Sender: FDA-Public Use
  Company Number: CA-ROCHE-1004999

PATIENT
  Sex: Female
  Weight: 65.83 kg

DRUGS (5)
  1. CRESTOR [Concomitant]
  2. OXYBUTYNIN [Concomitant]
  3. RABEPRAZOLE SODIUM [Concomitant]
  4. ZOMETA [Concomitant]
  5. XELODA [Suspect]
     Indication: BREAST CANCER METASTATIC
     Route: 048

REACTIONS (1)
  - DEATH [None]
